FAERS Safety Report 13911733 (Version 1)
Quarter: 2017Q3

REPORT INFORMATION
  Report Type: Spontaneous
  Country: US (occurrence: US)
  Receive Date: 20170828
  Receipt Date: 20170828
  Transmission Date: 20171127
  Serious: No
  Sender: FDA-Public Use
  Company Number: US-ROCHE-1144565

PATIENT
  Age: 46 Year
  Sex: Female
  Weight: 60 kg

DRUGS (15)
  1. XANAX [Concomitant]
     Active Substance: ALPRAZOLAM
     Route: 065
  2. CORTEF [Concomitant]
     Active Substance: HYDROCORTISONE
  3. NEURONTIN [Concomitant]
     Active Substance: GABAPENTIN
  4. ZOLOFT [Concomitant]
     Active Substance: SERTRALINE HYDROCHLORIDE
     Route: 065
  5. VANCENASE [Concomitant]
     Active Substance: BECLOMETHASONE DIPROPIONATE
  6. VITAMIN E [Concomitant]
     Active Substance: .ALPHA.-TOCOPHEROL
  7. VITAMIN B [Concomitant]
     Active Substance: VITAMIN B
  8. CYTOMEL [Concomitant]
     Active Substance: LIOTHYRONINE SODIUM
     Route: 065
  9. CLONAZEPAM. [Concomitant]
     Active Substance: CLONAZEPAM
     Route: 065
  10. PREMPRO [Concomitant]
     Active Substance: ESTROGENS, CONJUGATED\MEDROXYPROGESTERONE ACETATE
  11. VITAMIN C [Concomitant]
     Active Substance: ASCORBIC ACID
     Route: 065
  12. DURAVENT [Concomitant]
     Active Substance: CHLORPHENIRAMINE MALEATE\METHSCOPOLAMINE NITRATE\PHENYLEPHRINE HYDROCHLORIDE
  13. LEVOXYL [Concomitant]
     Active Substance: LEVOTHYROXINE SODIUM
     Route: 065
  14. NUTROPIN AQ [Suspect]
     Active Substance: SOMATROPIN
     Indication: HYPOPITUITARISM
     Route: 065
  15. ADDERALL [Concomitant]
     Active Substance: AMPHETAMINE ASPARTATE\AMPHETAMINE SULFATE\DEXTROAMPHETAMINE SACCHARATE\DEXTROAMPHETAMINE SULFATE

REACTIONS (23)
  - Epistaxis [Recovering/Resolving]
  - Oropharyngeal pain [Unknown]
  - Lower respiratory tract congestion [Unknown]
  - Tachyphrenia [Unknown]
  - Headache [Recovering/Resolving]
  - Restlessness [Unknown]
  - Crying [Unknown]
  - Palpitations [Unknown]
  - Fatigue [Unknown]
  - Nausea [Unknown]
  - Asthenia [Unknown]
  - Bone pain [Unknown]
  - Constipation [Unknown]
  - Cough [Unknown]
  - Sleep disorder [Unknown]
  - Breast tenderness [Unknown]
  - Thirst [Unknown]
  - Depression [Unknown]
  - Myalgia [Unknown]
  - Nervousness [Unknown]
  - Back pain [Unknown]
  - Ear pain [Unknown]
  - Hypoglycaemia [Unknown]

NARRATIVE: CASE EVENT DATE: 19991208
